FAERS Safety Report 12115749 (Version 4)
Quarter: 2016Q2

REPORT INFORMATION
  Report Type: Spontaneous
  Country: US (occurrence: US)
  Receive Date: 20160225
  Receipt Date: 20160406
  Transmission Date: 20160815
  Serious: Yes (Death, Hospitalization, Other)
  Sender: FDA-Public Use
  Company Number: US-PFIZER INC-2016099421

PATIENT
  Age: 68 Year
  Sex: Male
  Weight: 72.56 kg

DRUGS (5)
  1. SUTENT [Suspect]
     Active Substance: SUNITINIB MALATE
     Indication: RENAL CELL CARCINOMA STAGE IV
     Dosage: 50 MG, DAILY FOR 28 DAYS ON/ 14 DAYS OFF
     Route: 048
     Dates: start: 20160202, end: 20160222
  2. SENNATAB [Concomitant]
     Indication: CONSTIPATION
     Route: 048
  3. OXYCONTIN [Concomitant]
     Active Substance: OXYCODONE HYDROCHLORIDE
     Indication: PAIN
     Dosage: UNK
  4. HYDROCHLOROTHIAZIDE. [Concomitant]
     Active Substance: HYDROCHLOROTHIAZIDE
     Dosage: UNK
     Dates: end: 20160202
  5. LISINOPRIL. [Concomitant]
     Active Substance: LISINOPRIL
     Dosage: UNK

REACTIONS (17)
  - Cardiac failure [Unknown]
  - Blood potassium increased [Unknown]
  - Abdominal pain [Unknown]
  - Multiple organ dysfunction syndrome [Unknown]
  - Acidosis [Unknown]
  - Atrial fibrillation [Unknown]
  - Pneumonia [Unknown]
  - Nausea [Unknown]
  - Hypotension [Fatal]
  - Acute kidney injury [Unknown]
  - Pulse abnormal [Unknown]
  - Respiratory distress [Fatal]
  - Abdominal pain upper [Unknown]
  - Hepatocellular injury [Unknown]
  - Loss of consciousness [Unknown]
  - Seizure [Unknown]
  - Constipation [Unknown]

NARRATIVE: CASE EVENT DATE: 2016
